FAERS Safety Report 4810259-4 (Version None)
Quarter: 2005Q4

REPORT INFORMATION
  Report Type: 
  Country: None (occurrence: None)
  Receive Date: 20051026
  Receipt Date: 20051024
  Transmission Date: 20060501
  Serious: Yes (Other)
  Sender: FDA-Public Use
  Company Number: DE-GLAXOSMITHKLINE-D0047790A

PATIENT
  Age: 44 Year
  Sex: Female

DRUGS (1)
  1. QUILONUM RETARD [Suspect]
     Route: 065
     Dates: start: 19950101

REACTIONS (1)
  - GLAUCOMA [None]
